APPROVED DRUG PRODUCT: BENZTROPINE MESYLATE
Active Ingredient: BENZTROPINE MESYLATE
Strength: 1MG
Dosage Form/Route: TABLET;ORAL
Application: A072265 | Product #001 | TE Code: AA
Applicant: EPIC PHARMA LLC
Approved: Feb 27, 1989 | RLD: No | RS: No | Type: RX